FAERS Safety Report 14690192 (Version 1)
Quarter: 2018Q1

REPORT INFORMATION
  Report Type: Spontaneous
  Country: CH (occurrence: CH)
  Receive Date: 20180328
  Receipt Date: 20180328
  Transmission Date: 20180509
  Serious: Yes (Other)
  Sender: FDA-Public Use
  Company Number: CH-BAUSCH-BL-2017-029225

PATIENT
  Age: 54 Year
  Sex: Female

DRUGS (5)
  1. AMOXICILLIN. [Suspect]
     Active Substance: AMOXICILLIN
     Indication: SKIN TEST
     Route: 065
  2. CLINDAMYCIN. [Suspect]
     Active Substance: CLINDAMYCIN
     Indication: SKIN TEST
     Route: 065
  3. AMOXICILLIN CLAVULANIC ACID [Suspect]
     Active Substance: AMOXICILLIN\CLAVULANIC ACID
     Indication: ERYSIPELAS
  4. AMOXICILLIN CLAVULANIC ACID [Suspect]
     Active Substance: AMOXICILLIN\CLAVULANIC ACID
     Indication: SKIN TEST
     Dosage: TWO DOSES
     Route: 065
  5. CLINDAMYCIN. [Suspect]
     Active Substance: CLINDAMYCIN
     Indication: ERYSIPELAS

REACTIONS (3)
  - Type IV hypersensitivity reaction [Not Recovered/Not Resolved]
  - Symmetrical drug-related intertriginous and flexural exanthema [Not Recovered/Not Resolved]
  - Type I hypersensitivity [Not Recovered/Not Resolved]
